FAERS Safety Report 11650571 (Version 1)
Quarter: 2015Q4

REPORT INFORMATION
  Report Type: Spontaneous
  Country: US (occurrence: US)
  Receive Date: 20151021
  Receipt Date: 20151021
  Transmission Date: 20160304
  Serious: Yes (Other)
  Sender: FDA-Public Use
  Company Number: US-INCYTE CORPORATION-2015IN004233

PATIENT
  Age: 79 Year
  Weight: 58.33 kg

DRUGS (4)
  1. JAKAFI [Suspect]
     Active Substance: RUXOLITINIB
     Dosage: 15 MG, BID
     Route: 048
     Dates: end: 20151006
  2. ASPIRIN. [Concomitant]
     Active Substance: ASPIRIN
     Dosage: 81 UNK, QD
     Route: 048
  3. JAKAFI [Suspect]
     Active Substance: RUXOLITINIB
     Indication: POLYCYTHAEMIA VERA
     Dosage: 10 MG, BID
     Route: 048
     Dates: start: 20150812, end: 201510
  4. JAKAFI [Suspect]
     Active Substance: RUXOLITINIB
     Dosage: 10 MG, BID
     Route: 048
     Dates: start: 20150806

REACTIONS (25)
  - Hypertension [Unknown]
  - Diarrhoea [Unknown]
  - Lymphopenia [Unknown]
  - Leukopenia [Unknown]
  - Rash [Unknown]
  - Dizziness [Unknown]
  - Anaemia [Unknown]
  - Arthralgia [Unknown]
  - Fatigue [Not Recovered/Not Resolved]
  - Abdominal pain [Unknown]
  - Nausea [Unknown]
  - Alanine aminotransferase increased [Unknown]
  - Neuropathy peripheral [Unknown]
  - Cytopenia [Unknown]
  - Febrile neutropenia [Unknown]
  - Epistaxis [Unknown]
  - Stomatitis [Unknown]
  - Vomiting [Unknown]
  - Insomnia [Unknown]
  - Thrombocytopenia [Unknown]
  - Headache [Unknown]
  - Oedema peripheral [Unknown]
  - Angioedema [Unknown]
  - Pyrexia [Unknown]
  - Neutropenia [Unknown]

NARRATIVE: CASE EVENT DATE: 2015
